FAERS Safety Report 11099978 (Version 1)
Quarter: 2015Q2

REPORT INFORMATION
  Report Type: Spontaneous
  Country: FR (occurrence: FR)
  Receive Date: 20150508
  Receipt Date: 20150508
  Transmission Date: 20150821
  Serious: Yes (Hospitalization)
  Sender: FDA-Public Use
  Company Number: FR-009507513-1505FRA001395

PATIENT
  Age: 58 Year
  Sex: Male

DRUGS (20)
  1. MOTILIUM [Concomitant]
     Active Substance: DOMPERIDONE
     Indication: INFLUENZA
     Dosage: UNK
     Dates: start: 20140213
  2. AUGMENTIN [Concomitant]
     Active Substance: AMOXICILLIN\CLAVULANATE POTASSIUM
     Indication: SINUSITIS
  3. PIVALONE [Concomitant]
     Active Substance: TIXOCORTOL PIVALATE
     Indication: INFLUENZA
     Dosage: UNK
     Dates: start: 20140213, end: 20140323
  4. DIAMICRON [Suspect]
     Active Substance: GLICLAZIDE
     Indication: PRODUCT USED FOR UNKNOWN INDICATION
     Dosage: 30 MG, QD
     Route: 048
     Dates: end: 20140320
  5. PERINDOPRIL [Concomitant]
     Active Substance: PERINDOPRIL
     Indication: PRODUCT USED FOR UNKNOWN INDICATION
     Dosage: 4 MG, QD
     Route: 048
  6. BRICANYL [Concomitant]
     Active Substance: TERBUTALINE SULFATE
     Indication: SINUSITIS
  7. MOTILIUM [Concomitant]
     Active Substance: DOMPERIDONE
     Indication: SINUSITIS
  8. SOLUPRED [Concomitant]
     Active Substance: PREDNISOLONE
     Indication: MIDDLE LOBE SYNDROME
     Dosage: UNK
     Dates: start: 20140220
  9. SIMVASTATIN. [Concomitant]
     Active Substance: SIMVASTATIN
     Indication: PRODUCT USED FOR UNKNOWN INDICATION
     Dosage: 40 MG, QD
  10. AUGMENTIN [Concomitant]
     Active Substance: AMOXICILLIN\CLAVULANATE POTASSIUM
     Indication: MIDDLE LOBE SYNDROME
  11. BRICANYL [Concomitant]
     Active Substance: TERBUTALINE SULFATE
     Indication: BRONCHITIS
  12. AUGMENTIN [Concomitant]
     Active Substance: AMOXICILLIN\CLAVULANATE POTASSIUM
     Indication: INFLUENZA
     Dosage: UNK
     Dates: start: 20140213
  13. VELMETIA [Suspect]
     Active Substance: METFORMIN\SITAGLIPTIN
     Indication: PRODUCT USED FOR UNKNOWN INDICATION
     Dosage: 1 DF, BID
     Route: 048
     Dates: start: 200912, end: 20140320
  14. AUGMENTIN [Concomitant]
     Active Substance: AMOXICILLIN\CLAVULANATE POTASSIUM
     Indication: BRONCHITIS
  15. PIVALONE [Concomitant]
     Active Substance: TIXOCORTOL PIVALATE
     Indication: SINUSITIS
  16. BRICANYL [Concomitant]
     Active Substance: TERBUTALINE SULFATE
     Indication: INFLUENZA
     Dosage: UNK
     Dates: start: 20140213
  17. MOTILIUM [Concomitant]
     Active Substance: DOMPERIDONE
     Indication: BRONCHITIS
  18. PIVALONE [Concomitant]
     Active Substance: TIXOCORTOL PIVALATE
     Indication: BRONCHITIS
     Dosage: UNK
     Dates: start: 20140224
  19. TAVANIC [Concomitant]
     Active Substance: LEVOFLOXACIN
     Indication: MIDDLE LOBE SYNDROME
     Dosage: UNK
     Dates: start: 20140220
  20. AMBROXOL [Concomitant]
     Active Substance: AMBROXOL
     Indication: MIDDLE LOBE SYNDROME
     Dosage: UNK
     Dates: start: 20140220

REACTIONS (1)
  - Congestive cardiomyopathy [Recovered/Resolved with Sequelae]

NARRATIVE: CASE EVENT DATE: 20140315
